FAERS Safety Report 17305513 (Version 1)
Quarter: 2020Q1

REPORT INFORMATION
  Report Type: Spontaneous
  Country: US (occurrence: US)
  Receive Date: 20200123
  Receipt Date: 20200123
  Transmission Date: 20200409
  Serious: No
  Sender: FDA-Public Use
  Company Number: US-BIOGEN-2020BI00830120

PATIENT
  Sex: Female

DRUGS (2)
  1. PLEGRIDY [Suspect]
     Active Substance: PEGINTERFERON BETA-1A
     Indication: MULTIPLE SCLEROSIS
     Dosage: INJECT ONE PEN (125 MCG) SUBCUTANEOUSLY EVERY 14 DAYS.  REFRIGERATE.DO NOT FREEZE.
     Route: 058
     Dates: start: 201811
  2. NEURONTIN [Concomitant]
     Active Substance: GABAPENTIN
     Route: 065

REACTIONS (2)
  - Injection site erythema [Unknown]
  - Inappropriate schedule of product administration [Unknown]
